APPROVED DRUG PRODUCT: FEXOFENADINE HYDROCHLORIDE HIVES
Active Ingredient: FEXOFENADINE HYDROCHLORIDE
Strength: 60MG
Dosage Form/Route: TABLET;ORAL
Application: A204507 | Product #004
Applicant: SCIEGEN PHARMACEUTICALS INC
Approved: Sep 16, 2015 | RLD: No | RS: No | Type: OTC